FAERS Safety Report 9684702 (Version 1)
Quarter: 2013Q4

REPORT INFORMATION
  Report Type: Spontaneous
  Country: US (occurrence: None)
  Receive Date: 20131108
  Receipt Date: 20131108
  Transmission Date: 20140711
  Serious: Yes (Hospitalization)
  Sender: FDA-Public Use
  Company Number: 2013AP009505

PATIENT
  Age: 5 Year
  Sex: Male

DRUGS (1)
  1. SERTRALINE HYDROCHLORIDE [Suspect]
     Route: 048

REACTIONS (3)
  - Serotonin syndrome [None]
  - Self-medication [None]
  - Toxicity to various agents [None]
